FAERS Safety Report 6305534-0 (Version None)
Quarter: 2009Q3

REPORT INFORMATION
  Report Type: 
  Country: None (occurrence: None)
  Receive Date: 20090807
  Receipt Date: 20090730
  Transmission Date: 20100115
  Serious: Yes (Life-Threatening, Hospitalization, Other)
  Sender: FDA-Public Use
  Company Number: 2009SP015909

PATIENT
  Age: 34 Year
  Sex: Male
  Weight: 65 kg

DRUGS (6)
  1. PEG-INTRON [Suspect]
     Indication: HEPATITIS C
     Dosage: 120 MCG; QW; IM
     Route: 030
     Dates: start: 20081216, end: 20090327
  2. RIBAVIRIN [Suspect]
     Indication: HEPATITIS C
     Dosage: 200 MG; QD; OROP
     Route: 049
     Dates: start: 20081212, end: 20090331
  3. MCP [Concomitant]
  4. METHADDICT [Concomitant]
  5. OMEPRAZOL [Concomitant]
  6. TRIMIPRAMINE MALEATE [Concomitant]

REACTIONS (11)
  - ACUTE RESPIRATORY DISTRESS SYNDROME [None]
  - CONTRAST MEDIA REACTION [None]
  - DECUBITUS ULCER [None]
  - ENTEROCOCCAL INFECTION [None]
  - GASTROINTESTINAL HAEMORRHAGE [None]
  - GENERAL PHYSICAL HEALTH DETERIORATION [None]
  - PANCYTOPENIA [None]
  - PNEUMONIA [None]
  - PULMONARY EMBOLISM [None]
  - PYOTHORAX [None]
  - RENAL FAILURE ACUTE [None]
